FAERS Safety Report 15702077 (Version 1)
Quarter: 2018Q4

REPORT INFORMATION
  Report Type: Spontaneous
  Country: US (occurrence: US)
  Receive Date: 20181209
  Receipt Date: 20181209
  Transmission Date: 20190205
  Serious: No
  Sender: FDA-Public Use
  Company Number: US-JNJFOC-20181116133

PATIENT
  Age: 77 Year
  Sex: Female
  Weight: 49.9 kg

DRUGS (1)
  1. TYLENOL EXTRA STRENGTH [Suspect]
     Active Substance: ACETAMINOPHEN
     Indication: SPONDYLITIS
     Dosage: AS NEEDED
     Route: 048

REACTIONS (1)
  - Inappropriate schedule of product administration [Unknown]
